FAERS Safety Report 7762247-6 (Version None)
Quarter: 2011Q3

REPORT INFORMATION
  Report Type: 
  Country: None (occurrence: None)
  Receive Date: 20110920
  Receipt Date: 20110606
  Transmission Date: 20111222
  Serious: Yes (Hospitalization)
  Sender: FDA-Public Use
  Company Number: JP-ROCHE-782019

PATIENT
  Age: 51 Year
  Sex: Male
  Weight: 67 kg

DRUGS (43)
  1. MYCOPHENOLATE MOFETIL [Suspect]
     Route: 048
     Dates: start: 20060628, end: 20060702
  2. MYCOPHENOLATE MOFETIL [Suspect]
     Route: 048
     Dates: start: 20060703, end: 20060703
  3. PREDNISOLONE [Suspect]
     Indication: PROPHYLAXIS AGAINST TRANSPLANT REJECTION
     Dosage: PERORAL AGENT. NOTE: 0030MG
     Route: 048
     Dates: start: 20060624, end: 20080611
  4. VALGANCICLOVIR [Suspect]
     Route: 048
     Dates: start: 20070618
  5. CANDESARTAN CILEXETIL [Concomitant]
     Dosage: PERORAL AGENT
     Route: 048
     Dates: start: 20060617
  6. LASIX [Concomitant]
     Dosage: PERORAL AGENT
     Route: 048
     Dates: start: 20060623
  7. MYCOPHENOLATE MOFETIL [Suspect]
     Indication: PROPHYLAXIS AGAINST TRANSPLANT REJECTION
     Route: 048
     Dates: start: 20060618, end: 20060618
  8. SANDIMMUNE [Suspect]
     Indication: PROPHYLAXIS AGAINST TRANSPLANT REJECTION
     Route: 042
     Dates: start: 20060618, end: 20060619
  9. PROGRAF [Suspect]
     Indication: PROPHYLAXIS AGAINST TRANSPLANT REJECTION
     Dosage: NOTE: 338.2MG
     Route: 048
     Dates: start: 20080318
  10. FERROUS CITRATE [Suspect]
     Indication: PROPHYLAXIS AGAINST TRANSPLANT REJECTION
     Route: 048
     Dates: end: 20061004
  11. VALGANCICLOVIR [Suspect]
     Indication: PROPHYLAXIS AGAINST TRANSPLANT REJECTION
     Dosage: PERORAL AGENT
     Route: 048
     Dates: start: 20060617, end: 20070618
  12. ZOLPIDEM [Concomitant]
     Dosage: NOTE: 5510MG
     Route: 048
  13. LIPITOR [Concomitant]
     Route: 048
     Dates: start: 20061006
  14. MYCOPHENOLATE MOFETIL [Suspect]
     Route: 048
     Dates: start: 20080822, end: 20081106
  15. MYCOPHENOLATE MOFETIL [Suspect]
     Route: 048
     Dates: start: 20081117, end: 20081119
  16. MYCOPHENOLATE MOFETIL [Suspect]
     Route: 048
     Dates: start: 20081120, end: 20081124
  17. MYCOPHENOLATE MOFETIL [Suspect]
     Route: 048
     Dates: start: 20090205, end: 20090401
  18. MYCOPHENOLATE MOFETIL [Suspect]
     Route: 048
     Dates: start: 20090715, end: 20090723
  19. VALGANCICLOVIR [Suspect]
     Route: 048
     Dates: start: 20070617
  20. MYCOPHENOLATE MOFETIL [Suspect]
     Route: 048
     Dates: start: 20080619, end: 20080821
  21. MYCOPHENOLATE MOFETIL [Suspect]
     Route: 048
     Dates: start: 20090401, end: 20090714
  22. PREDNISOLONE [Suspect]
     Dosage: NOTE: 2.5210MG. PERORAL AGENT
     Route: 048
     Dates: start: 20081001
  23. VALGANCICLOVIR [Suspect]
     Dosage: PERORAL AGENT
     Route: 048
     Dates: start: 20071018
  24. WARFARIN SODIUM [Concomitant]
     Dosage: NOTE: 1.514.5MG. PERORA AGENT
     Route: 048
     Dates: start: 20060816
  25. MYCOPHENOLATE MOFETIL [Suspect]
     Route: 048
     Dates: start: 20060704, end: 20080618
  26. FERROUS SULFATE TAB [Suspect]
     Indication: PROPHYLAXIS AGAINST TRANSPLANT REJECTION
     Route: 048
     Dates: start: 20061006, end: 20090713
  27. LOSARTAN POTASSIUM [Concomitant]
     Route: 048
     Dates: start: 20060623
  28. AMIODARONE HCL [Concomitant]
     Route: 048
     Dates: start: 20060623
  29. HALCION [Concomitant]
     Dosage: NOTE: 0.37500.75MG. PERORAL AGENT
     Route: 048
     Dates: start: 20070315
  30. MYCOPHENOLATE MOFETIL [Suspect]
     Route: 048
     Dates: start: 20060619, end: 20060619
  31. MYCOPHENOLATE MOFETIL [Suspect]
     Route: 048
     Dates: start: 20060625, end: 20060626
  32. MYCOPHENOLATE MOFETIL [Suspect]
     Route: 048
     Dates: start: 20081125, end: 20090204
  33. NEORAL [Suspect]
     Indication: PROPHYLAXIS AGAINST TRANSPLANT REJECTION
     Dosage: NOTE: 2202 380MG. PERORAL AGENT
     Route: 048
     Dates: start: 20060619, end: 20080318
  34. NORVASC [Concomitant]
     Dosage: PERORAL AGENT
     Route: 048
     Dates: start: 20060617
  35. OMEPRAZOLE [Concomitant]
     Route: 048
  36. MYCOPHENOLATE MOFETIL [Suspect]
     Route: 048
     Dates: start: 20060620, end: 20060624
  37. MYCOPHENOLATE MOFETIL [Suspect]
     Route: 048
     Dates: start: 20090724, end: 20090730
  38. SPIRONOLACTONE [Concomitant]
     Route: 048
     Dates: start: 20060623
  39. SULFAMETHOXAZOLE [Concomitant]
     Dosage: PERORAL AGENT
     Route: 048
  40. MAGNESIUM SULFATE [Concomitant]
     Dosage: PERORAL AGENT
     Route: 048
     Dates: start: 20060617
  41. SOLU-MEDROL [Concomitant]
     Dosage: NOTE: 707375MG
     Route: 042
     Dates: start: 20060617, end: 20060623
  42. ASPIRIN [Concomitant]
     Dosage: PERORAL AGENT. NOTE: 818100MG
     Route: 048
     Dates: start: 20060617
  43. PRAVASTATIN [Concomitant]
     Dosage: PERORAL AGENT. PRAVASTAN
     Route: 048
     Dates: start: 20061005

REACTIONS (13)
  - ABNORMAL BEHAVIOUR [None]
  - WHITE BLOOD CELL COUNT DECREASED [None]
  - PANCYTOPENIA [None]
  - DIARRHOEA [None]
  - DECREASED APPETITE [None]
  - DERMATITIS CONTACT [None]
  - BLOOD IMMUNOGLOBULIN G DECREASED [None]
  - BLOOD CORTISOL DECREASED [None]
  - HAEMOGLOBIN DECREASED [None]
  - LYMPHORRHOEA [None]
  - HYPERLIPIDAEMIA [None]
  - NEUTROPHIL COUNT DECREASED [None]
  - VOMITING [None]
